FAERS Safety Report 24076445 (Version 1)
Quarter: 2024Q3

REPORT INFORMATION
  Report Type: Spontaneous
  Country: PT (occurrence: PT)
  Receive Date: 20240711
  Receipt Date: 20240711
  Transmission Date: 20241017
  Serious: Yes (Other)
  Sender: ABBVIE
  Company Number: PT-ABBVIE-5830193

PATIENT

DRUGS (2)
  1. VENETOCLAX [Suspect]
     Active Substance: VENETOCLAX
     Indication: Chronic lymphocytic leukaemia
     Route: 048
  2. RITUXIMAB [Suspect]
     Active Substance: RITUXIMAB
     Indication: Chronic lymphocytic leukaemia
     Route: 065

REACTIONS (20)
  - Chronic lymphocytic leukaemia [Unknown]
  - Infection [Unknown]
  - Febrile neutropenia [Unknown]
  - Tumour lysis syndrome [Unknown]
  - Unevaluable event [Unknown]
  - Thrombocytopenia [Unknown]
  - Thrombocytopenia [Unknown]
  - Infection [Unknown]
  - Vomiting [Unknown]
  - Diarrhoea [Unknown]
  - Infection [Unknown]
  - Anaemia [Unknown]
  - Hypogammaglobulinaemia [Unknown]
  - Anaemia [Unknown]
  - Neutropenia [Unknown]
  - Haematotoxicity [Unknown]
  - Nausea [Unknown]
  - Cytopenia [Unknown]
  - Neutropenia [Unknown]
  - Haematotoxicity [Unknown]
